FAERS Safety Report 21135320 (Version 1)
Quarter: 2022Q3

REPORT INFORMATION
  Report Type: Report from Study
  Country: US (occurrence: US)
  Receive Date: 20220727
  Receipt Date: 20220727
  Transmission Date: 20221026
  Serious: Yes (Hospitalization, Other)
  Sender: FDA-Public Use
  Company Number: US-GILEAD-2022-0590626

PATIENT
  Age: 22 Year
  Sex: Female

DRUGS (21)
  1. AZTREONAM LYSINE [Suspect]
     Active Substance: AZTREONAM LYSINE
     Indication: Cystic fibrosis
     Dosage: 1 DOSAGE FORM (1 VIAL), TID FOR 28 DAYS ON AND 28 DAYS OFF ALTERNATE WITH TOBRAMYCIN
     Route: 055
     Dates: start: 20150218
  2. ALBUTEROL SULFATE [Concomitant]
     Active Substance: ALBUTEROL SULFATE
  3. AZITHROMYCIN [Concomitant]
     Active Substance: AZITHROMYCIN
  4. ZYRTEC [Concomitant]
     Active Substance: CETIRIZINE HYDROCHLORIDE
  5. VITAMIN D3 [Concomitant]
     Active Substance: CHOLECALCIFEROL
  6. PULMOZYME [Concomitant]
     Active Substance: DORNASE ALFA
  7. MOMETASONE FUROATE [Concomitant]
     Active Substance: MOMETASONE FUROATE
  8. FLOVENT [Concomitant]
     Active Substance: FLUTICASONE PROPIONATE
  9. CREON [Concomitant]
     Active Substance: PANCRELIPASE AMYLASE\PANCRELIPASE LIPASE\PANCRELIPASE PROTEASE
  10. LANTUS [Concomitant]
     Active Substance: INSULIN GLARGINE
  11. DEKA [Concomitant]
  12. URSODIOL [Concomitant]
     Active Substance: URSODIOL
  13. SODIUM CHLORIDE [Concomitant]
     Active Substance: SODIUM CHLORIDE
  14. GLUCAGON [Concomitant]
     Active Substance: GLUCAGON
  15. OMEPRAZOLE [Concomitant]
     Active Substance: OMEPRAZOLE
  16. VITAMIN K [Concomitant]
     Active Substance: PHYTONADIONE
  17. SYMDEKO [Concomitant]
     Active Substance: IVACAFTOR\TEZACAFTOR
  18. VITAMIN E [Concomitant]
     Active Substance: .ALPHA.-TOCOPHEROL
  19. RETINOL [Concomitant]
     Active Substance: RETINOL
  20. TOBRAMYCIN [Concomitant]
     Active Substance: TOBRAMYCIN
  21. TRIKAFTA [Concomitant]
     Active Substance: ELEXACAFTOR\IVACAFTOR\TEZACAFTOR

REACTIONS (1)
  - Cystic fibrosis [Recovered/Resolved]

NARRATIVE: CASE EVENT DATE: 20220601
